FAERS Safety Report 5809409-2 (Version None)
Quarter: 2008Q3

REPORT INFORMATION
  Report Type: 
  Country: None (occurrence: None)
  Receive Date: 20080714
  Receipt Date: 20080704
  Transmission Date: 20090109
  Serious: Yes (Other)
  Sender: FDA-Public Use
  Company Number: GB-ABBOTT-08P-167-0461317-00

PATIENT
  Sex: Female

DRUGS (2)
  1. HUMIRA [Suspect]
     Indication: DRUG USE FOR UNKNOWN INDICATION
  2. METHOTREXATE [Concomitant]
     Indication: DRUG USE FOR UNKNOWN INDICATION

REACTIONS (7)
  - BRAIN STEM SYNDROME [None]
  - CSF PROTEIN ABNORMAL [None]
  - ENCEPHALITIS [None]
  - INFECTION [None]
  - MENINGISM [None]
  - NYSTAGMUS [None]
  - PHARYNGEAL OEDEMA [None]
